FAERS Safety Report 23231953 (Version 1)
Quarter: 2023Q4

REPORT INFORMATION
  Report Type: Spontaneous
  Country: US (occurrence: None)
  Receive Date: 20231127
  Receipt Date: 20231127
  Transmission Date: 20240110
  Serious: Yes (Hospitalization)
  Sender: FDA-Public Use
  Company Number: None

PATIENT
  Sex: Male

DRUGS (6)
  1. NULOJIX [Suspect]
     Active Substance: BELATACEPT
     Indication: Lung transplant
     Dosage: FREQUENCY : MONTHLY;?
     Route: 042
     Dates: start: 202309
  2. SIROLIMUS [Concomitant]
     Active Substance: SIROLIMUS
  3. TACROLIMUS [Concomitant]
     Active Substance: TACROLIMUS
  4. MYCOPHENOLIC ACID [Concomitant]
     Active Substance: MYCOPHENOLIC ACID
  5. CYCLOSPORINE MODIFIED [Concomitant]
     Active Substance: CYCLOSPORINE
  6. PREVYMIS (4X7) [Concomitant]

REACTIONS (1)
  - Cytomegalovirus infection [None]
